FAERS Safety Report 23666337 (Version 4)
Quarter: 2024Q2

REPORT INFORMATION
  Report Type: Spontaneous
  Country: US (occurrence: US)
  Receive Date: 20240324
  Receipt Date: 20240605
  Transmission Date: 20240716
  Serious: No
  Sender: FDA-Public Use
  Company Number: US-AVEVA-000611

PATIENT
  Sex: Male

DRUGS (3)
  1. BUPRENORPHINE [Suspect]
     Active Substance: BUPRENORPHINE
     Indication: Product used for unknown indication
     Dosage: 20 MICROGRAM/HOUR
     Route: 062
  2. BUPRENORPHINE TRANSDERMAL SYSTEM [Suspect]
     Active Substance: BUPRENORPHINE
     Indication: Product used for unknown indication
     Dosage: 5 MICROGRAM/HOUR
     Route: 062
  3. BUPRENORPHINE TRANSDERMAL SYSTEM [Suspect]
     Active Substance: BUPRENORPHINE
     Indication: Product used for unknown indication
     Dosage: 15 MICROGRAM/HOUR
     Route: 062

REACTIONS (3)
  - Skin burning sensation [Unknown]
  - Erythema [Unknown]
  - Blister [Unknown]
